FAERS Safety Report 9819014 (Version 2)
Quarter: 2014Q1

REPORT INFORMATION
  Report Type: Spontaneous
  Country: JP (occurrence: None)
  Receive Date: 20140113
  Receipt Date: 20140122
  Transmission Date: 20141002
  Serious: Yes (Hospitalization)
  Sender: FDA-Public Use
  Company Number: JP-014183

PATIENT
  Age: 62 Year
  Sex: Male
  Weight: 69 kg

DRUGS (14)
  1. DEGARELIX [Suspect]
     Indication: PROSTATE CANCER
     Route: 058
     Dates: start: 20130823, end: 20130823
  2. TOYOFAROL [Suspect]
     Indication: HYPOCALCAEMIA
     Dosage: (UID). ORAL). (4 UG QID)
     Route: 048
     Dates: start: 20130910, end: 20130912
  3. AMLODIPINE [Concomitant]
  4. THYRADIN [Concomitant]
  5. FEBURIC [Concomitant]
  6. BICALUTAMIDE [Concomitant]
  7. CASODEX [Concomitant]
  8. SODIUM CHLORIDE [Concomitant]
  9. SOLITA-TI [Concomitant]
  10. LOXOPROFEN [Concomitant]
  11. REBAMIPIDE [Concomitant]
  12. CELESTAMINE [Concomitant]
  13. SHAKUYAKUKANZOTO [Concomitant]
  14. MAGMITT [Concomitant]

REACTIONS (8)
  - Hypocalcaemia [None]
  - Urticaria [None]
  - Blood albumin abnormal [None]
  - Condition aggravated [None]
  - Muscular weakness [None]
  - Hypoaesthesia [None]
  - Hypoaesthesia [None]
  - Muscle spasms [None]
